FAERS Safety Report 8936649 (Version 11)
Quarter: 2015Q3

REPORT INFORMATION
  Report Type: Spontaneous
  Country: US (occurrence: US)
  Receive Date: 20121130
  Receipt Date: 20150807
  Transmission Date: 20151125
  Serious: Yes (Hospitalization, Congenital Anomaly, Other)
  Sender: FDA-Public Use
  Company Number: US-PFIZER INC-2012297632

PATIENT
  Sex: Male
  Weight: 3.7 kg

DRUGS (22)
  1. PRENATAL VITAMINS [Concomitant]
     Active Substance: VITAMINS
     Dosage: UNK
     Route: 064
  2. VALACICLOVIR HYDROCHLORIDE [Concomitant]
     Active Substance: VALACYCLOVIR HYDROCHLORIDE
     Dosage: 1 G, UNK
     Route: 064
     Dates: start: 20100722
  3. METHYLDOPA. [Concomitant]
     Active Substance: METHYLDOPA
     Dosage: 250 MG, UNK
     Route: 064
     Dates: start: 20100316
  4. WATER PILL [Concomitant]
     Active Substance: UNSPECIFIED INGREDIENT
     Route: 064
  5. ZOLOFT [Suspect]
     Active Substance: SERTRALINE HYDROCHLORIDE
     Dosage: UNK
     Route: 064
     Dates: start: 20100308, end: 20100519
  6. MS CONTIN [Concomitant]
     Active Substance: MORPHINE SULFATE
     Dosage: 15 MG, 1X/DAY
     Route: 064
  7. TOPAMAX [Concomitant]
     Active Substance: TOPIRAMATE
     Dosage: 100 MG, 1X/DAY
     Route: 064
  8. CYMBALTA [Concomitant]
     Active Substance: DULOXETINE HYDROCHLORIDE
     Dosage: 60 MG, 1X/DAY
     Route: 064
  9. ALDOMET [Concomitant]
     Active Substance: METHYLDOPA
     Dosage: 250 MG, UNK
     Route: 064
     Dates: start: 20100316
  10. NYSTATIN/TRIAMCINOLONE [Concomitant]
     Dosage: UNK
     Route: 064
     Dates: start: 20100512
  11. VALTREX [Concomitant]
     Active Substance: VALACYCLOVIR HYDROCHLORIDE
     Dosage: 500 MG, DAILY
     Route: 064
     Dates: start: 20100722
  12. CEPHALEXIN. [Concomitant]
     Active Substance: CEPHALEXIN
     Dosage: 500 MG, UNK
     Route: 064
     Dates: start: 20100408
  13. HYDROCORTISONE-PRAMOXINE [Concomitant]
     Dosage: UNK, 2.5 % CREAM
     Route: 064
     Dates: start: 20100902
  14. ACYCLOVIR. [Concomitant]
     Active Substance: ACYCLOVIR
     Dosage: 200 MG, UNK
     Route: 064
     Dates: start: 20091202
  15. HUMULIN R [Concomitant]
     Active Substance: INSULIN HUMAN
     Dosage: UNK
     Route: 064
     Dates: start: 20100322
  16. KEFLEX [Concomitant]
     Active Substance: CEPHALEXIN
     Indication: BACTERIAL VAGINOSIS
     Dosage: 500 MG, UNK
     Route: 064
     Dates: start: 20100408
  17. INSULIN [Concomitant]
     Active Substance: INSULIN NOS
     Route: 064
  18. KEFLEX [Concomitant]
     Active Substance: CEPHALEXIN
     Indication: URINARY TRACT INFECTION
  19. AMBI [Concomitant]
     Dosage: 40PSE-400GFN , UNK
     Route: 064
     Dates: start: 20100413
  20. HUMULIN N [Concomitant]
     Active Substance: INSULIN HUMAN
     Dosage: 10 UNITS, UNK
     Route: 064
     Dates: start: 20100422
  21. SERTRALINE [Concomitant]
     Active Substance: SERTRALINE HYDROCHLORIDE
     Dosage: 50 MG, UNK
     Route: 064
     Dates: start: 20100318
  22. VALACICLOVIR HYDROCHLORIDE [Concomitant]
     Active Substance: VALACYCLOVIR HYDROCHLORIDE
     Dosage: 500 MG, UNK
     Route: 064
     Dates: start: 20100722

REACTIONS (8)
  - Pulmonary artery stenosis congenital [Unknown]
  - Patent ductus arteriosus [Unknown]
  - Pericardial effusion [Unknown]
  - Congenital mitral valve incompetence [Unknown]
  - Heart disease congenital [Unknown]
  - Ventricular septal defect [Unknown]
  - Atrial septal defect [Unknown]
  - Maternal exposure timing unspecified [Unknown]

NARRATIVE: CASE EVENT DATE: 20100930
